FAERS Safety Report 8016651-1 (Version None)
Quarter: 2012Q1

REPORT INFORMATION
  Report Type: 
  Country: None (occurrence: None)
  Receive Date: 20120102
  Receipt Date: 20111223
  Transmission Date: 20120608
  Serious: Yes (Hospitalization)
  Sender: FDA-Public Use
  Company Number: US-AMGEN-USASP2011068795

PATIENT
  Age: 58 Year
  Sex: Male

DRUGS (2)
  1. REMICADE [Concomitant]
  2. ENBREL [Suspect]
     Indication: RHEUMATOID ARTHRITIS
     Dosage: 50 MG, QWK
     Dates: start: 20030501

REACTIONS (2)
  - ANGINA PECTORIS [None]
  - ARTHRALGIA [None]
